FAERS Safety Report 6406112-5 (Version None)
Quarter: 2009Q4

REPORT INFORMATION
  Report Type: 
  Country: None (occurrence: None)
  Receive Date: 20091016
  Receipt Date: 20091016
  Transmission Date: 20100525
  Serious: Yes (Other)
  Sender: FDA-Public Use
  Company Number: None

PATIENT
  Sex: Male
  Weight: 87.9978 kg

DRUGS (1)
  1. VIAGRA [Suspect]
     Indication: ERECTILE DYSFUNCTION
     Dosage: 1/2 TAB QD PRN PO
     Route: 048
     Dates: start: 20071026, end: 20091011

REACTIONS (2)
  - DEAFNESS TRANSITORY [None]
  - DEAFNESS UNILATERAL [None]
